FAERS Safety Report 17887617 (Version 8)
Quarter: 2024Q1

REPORT INFORMATION
  Report Type: Report from Study
  Country: CA (occurrence: None)
  Receive Date: 20200612
  Receipt Date: 20240130
  Transmission Date: 20240410
  Serious: Yes (Hospitalization, Other)
  Sender: FDA-Public Use
  Company Number: CA-PFIZER INC-2020223820

PATIENT
  Age: 62 Year
  Sex: Female

DRUGS (47)
  1. METHOTREXATE [Suspect]
     Active Substance: METHOTREXATE
     Indication: Product used for unknown indication
  2. OMALIZUMAB [Suspect]
     Active Substance: OMALIZUMAB
     Indication: Asthma
  3. OMALIZUMAB [Suspect]
     Active Substance: OMALIZUMAB
  4. OMALIZUMAB [Suspect]
     Active Substance: OMALIZUMAB
  5. OMALIZUMAB [Suspect]
     Active Substance: OMALIZUMAB
  6. OMALIZUMAB [Suspect]
     Active Substance: OMALIZUMAB
  7. OMALIZUMAB [Suspect]
     Active Substance: OMALIZUMAB
  8. OMALIZUMAB [Suspect]
     Active Substance: OMALIZUMAB
  9. OMALIZUMAB [Suspect]
     Active Substance: OMALIZUMAB
  10. OMALIZUMAB [Suspect]
     Active Substance: OMALIZUMAB
  11. OMALIZUMAB [Suspect]
     Active Substance: OMALIZUMAB
  12. OMALIZUMAB [Suspect]
     Active Substance: OMALIZUMAB
  13. OMALIZUMAB [Suspect]
     Active Substance: OMALIZUMAB
  14. OMALIZUMAB [Suspect]
     Active Substance: OMALIZUMAB
  15. OMALIZUMAB [Suspect]
     Active Substance: OMALIZUMAB
  16. OMALIZUMAB [Suspect]
     Active Substance: OMALIZUMAB
  17. OMALIZUMAB [Suspect]
     Active Substance: OMALIZUMAB
  18. OMALIZUMAB [Suspect]
     Active Substance: OMALIZUMAB
  19. OMALIZUMAB [Suspect]
     Active Substance: OMALIZUMAB
  20. OMALIZUMAB [Suspect]
     Active Substance: OMALIZUMAB
  21. OMALIZUMAB [Suspect]
     Active Substance: OMALIZUMAB
  22. OMALIZUMAB [Suspect]
     Active Substance: OMALIZUMAB
  23. OMALIZUMAB [Suspect]
     Active Substance: OMALIZUMAB
  24. OMALIZUMAB [Suspect]
     Active Substance: OMALIZUMAB
  25. OMALIZUMAB [Suspect]
     Active Substance: OMALIZUMAB
  26. OMALIZUMAB [Suspect]
     Active Substance: OMALIZUMAB
  27. OMALIZUMAB [Suspect]
     Active Substance: OMALIZUMAB
  28. OMALIZUMAB [Suspect]
     Active Substance: OMALIZUMAB
  29. OMALIZUMAB [Suspect]
     Active Substance: OMALIZUMAB
  30. OMALIZUMAB [Suspect]
     Active Substance: OMALIZUMAB
  31. OMALIZUMAB [Suspect]
     Active Substance: OMALIZUMAB
  32. PENICILLIN [Suspect]
     Active Substance: PENICILLIN
     Indication: Product used for unknown indication
  33. ALVESCO [Concomitant]
     Active Substance: CICLESONIDE
  34. ALVESCO [Concomitant]
     Active Substance: CICLESONIDE
  35. ALVESCO [Concomitant]
     Active Substance: CICLESONIDE
  36. PREDNISONE [Concomitant]
     Active Substance: PREDNISONE
  37. SINGULAIR [Concomitant]
     Active Substance: MONTELUKAST SODIUM
  38. SINGULAIR [Concomitant]
     Active Substance: MONTELUKAST SODIUM
  39. SINGULAIR [Concomitant]
     Active Substance: MONTELUKAST SODIUM
  40. SPIRIVA [Concomitant]
     Active Substance: TIOTROPIUM BROMIDE MONOHYDRATE
  41. SPIRIVA [Concomitant]
     Active Substance: TIOTROPIUM BROMIDE MONOHYDRATE
  42. VENTOLIN [Concomitant]
     Active Substance: ALBUTEROL SULFATE
  43. ZENHALE [Concomitant]
     Active Substance: FORMOTEROL FUMARATE\MOMETASONE FUROATE
  44. ZENHALE [Concomitant]
     Active Substance: FORMOTEROL FUMARATE\MOMETASONE FUROATE
  45. ZENHALE [Concomitant]
     Active Substance: FORMOTEROL FUMARATE\MOMETASONE FUROATE
  46. ATROVENT [Concomitant]
     Active Substance: IPRATROPIUM BROMIDE
  47. FORMOTEROL FUMARATE\MOMETASONE FUROATE [Concomitant]
     Active Substance: FORMOTEROL FUMARATE\MOMETASONE FUROATE

REACTIONS (43)
  - Drug ineffective [Not Recovered/Not Resolved]
  - Animal scratch [Not Recovered/Not Resolved]
  - Arthralgia [Not Recovered/Not Resolved]
  - Asthma [Not Recovered/Not Resolved]
  - Back pain [Not Recovered/Not Resolved]
  - Blood pressure increased [Not Recovered/Not Resolved]
  - Cellulitis [Not Recovered/Not Resolved]
  - Chest discomfort [Not Recovered/Not Resolved]
  - Cough [Not Recovered/Not Resolved]
  - Diarrhoea [Not Recovered/Not Resolved]
  - Dyspnoea [Not Recovered/Not Resolved]
  - Erythema [Not Recovered/Not Resolved]
  - Fatigue [Not Recovered/Not Resolved]
  - Fibromyalgia [Not Recovered/Not Resolved]
  - Flushing [Not Recovered/Not Resolved]
  - Forced expiratory volume decreased [Not Recovered/Not Resolved]
  - Headache [Not Recovered/Not Resolved]
  - Immunosuppression [Not Recovered/Not Resolved]
  - Malaise [Not Recovered/Not Resolved]
  - Mobility decreased [Not Recovered/Not Resolved]
  - Nasopharyngitis [Not Recovered/Not Resolved]
  - Pain [Not Recovered/Not Resolved]
  - Pancreatitis [Not Recovered/Not Resolved]
  - Productive cough [Not Recovered/Not Resolved]
  - Skin laceration [Not Recovered/Not Resolved]
  - Sleep disorder [Not Recovered/Not Resolved]
  - Sputum discoloured [Not Recovered/Not Resolved]
  - Viral infection [Not Recovered/Not Resolved]
  - Weight decreased [Not Recovered/Not Resolved]
  - Weight increased [Not Recovered/Not Resolved]
  - Wheezing [Not Recovered/Not Resolved]
  - Abscess [Not Recovered/Not Resolved]
  - Influenza [Not Recovered/Not Resolved]
  - Osteopenia [Not Recovered/Not Resolved]
  - Feeling hot [Not Recovered/Not Resolved]
  - Limb discomfort [Not Recovered/Not Resolved]
  - Peripheral swelling [Not Recovered/Not Resolved]
  - Vomiting [Not Recovered/Not Resolved]
  - Drug hypersensitivity [Not Recovered/Not Resolved]
  - Arthritis infective [Not Recovered/Not Resolved]
  - Arthritis [Not Recovered/Not Resolved]
  - Blister [Not Recovered/Not Resolved]
  - Eczema [Not Recovered/Not Resolved]
